FAERS Safety Report 9519285 (Version 1)
Quarter: 2013Q3

REPORT INFORMATION
  Report Type: Spontaneous
  Country: US (occurrence: None)
  Receive Date: 20130911
  Receipt Date: 20130911
  Transmission Date: 20140515
  Serious: Yes (Hospitalization)
  Sender: FDA-Public Use
  Company Number: None

PATIENT
  Sex: Male

DRUGS (11)
  1. INVOKANA [Suspect]
     Indication: DIABETES MELLITUS
     Route: 048
     Dates: start: 20130724, end: 20130728
  2. INSULIN [Concomitant]
  3. GLIMEPIRIDE [Concomitant]
  4. METFORMIN [Concomitant]
  5. ACTOS [Concomitant]
  6. LISINOPRL [Concomitant]
  7. LASIX [Concomitant]
  8. COUMADIN [Concomitant]
  9. METOPROLOL [Concomitant]
  10. AMITRIPTYLINE [Concomitant]
  11. LOVAZA [Concomitant]

REACTIONS (4)
  - Abdominal pain [None]
  - Hypotension [None]
  - Hypoxia [None]
  - Renal failure acute [None]
